FAERS Safety Report 5624812-1 (Version None)
Quarter: 2008Q1

REPORT INFORMATION
  Report Type: 
  Country: None (occurrence: None)
  Receive Date: 20080213
  Receipt Date: 20080204
  Transmission Date: 20080703
  Serious: Yes (Death)
  Sender: FDA-Public Use
  Company Number: DE-ROCHE-545539

PATIENT
  Age: 54 Year
  Sex: Female

DRUGS (49)
  1. VALGANCICLOVIR HCL [Suspect]
     Indication: INFECTION
     Dosage: DOSAGE RECEIVED ON 5 MARCH AND 7 MARCH 2005
     Route: 065
  2. UNAT [Suspect]
     Route: 048
     Dates: start: 20050213, end: 20050215
  3. NEORECORMON [Suspect]
     Indication: ANAEMIA
     Dosage: DOSAGE RECEIVED ON 12 MARCH, 15 MARCH, 17 MARCH AND 19 MARCH 2005.
     Route: 042
     Dates: end: 20050319
  4. DIOVAN HCT [Suspect]
     Route: 048
     Dates: start: 20050127, end: 20050304
  5. DECORTIN [Suspect]
     Indication: RENAL TRANSPLANT
     Route: 048
     Dates: start: 20050203, end: 20050316
  6. FORADIL [Suspect]
     Route: 055
     Dates: start: 20050127, end: 20050317
  7. OXIS [Suspect]
     Route: 055
     Dates: start: 20050127, end: 20050317
  8. OMEP [Suspect]
     Indication: PROPHYLAXIS
     Route: 048
     Dates: start: 20050203, end: 20050317
  9. GENTAMICIN [Suspect]
     Indication: ENDOCARDITIS
     Route: 042
     Dates: start: 20050202, end: 20050319
  10. VANCOMYCIN [Suspect]
     Indication: ENDOCARDITIS
     Route: 042
     Dates: start: 20050127, end: 20050319
  11. FRAXIPARIN [Suspect]
     Indication: THROMBOSIS PROPHYLAXIS
     Route: 058
     Dates: start: 20050127, end: 20050319
  12. METOPROLOL SUCCINATE [Suspect]
     Route: 048
     Dates: start: 20050203, end: 20050319
  13. ZOLDEM [Suspect]
     Indication: SLEEP DISORDER
     Route: 048
     Dates: start: 20050210, end: 20050222
  14. ZOLDEM [Suspect]
     Route: 048
     Dates: start: 20050307, end: 20050313
  15. ZOLDEM [Suspect]
     Dosage: DOSAGE RECEIVED ON 15 MARCH 2005, 17 MARCH 2005 AND 19 MARCH 2005
     Route: 048
     Dates: end: 20050319
  16. IMUREK [Suspect]
     Indication: RENAL TRANSPLANT
     Route: 048
     Dates: start: 20050127, end: 20050319
  17. SODIUM CHLORIDE [Suspect]
     Route: 042
     Dates: start: 20050127, end: 20050319
  18. L-THYROXIN [Suspect]
     Indication: HYPOTHYROIDISM
     Route: 048
     Dates: start: 20050127, end: 20050319
  19. RINGER'S INJECTION [Suspect]
     Route: 042
     Dates: start: 20050127, end: 20050319
  20. TELFAST [Suspect]
     Indication: PRURITUS
     Route: 048
     Dates: start: 20050302, end: 20050309
  21. PARACETAMOL [Suspect]
     Indication: PAIN
     Dosage: ONE DOSE RECEIVED
     Route: 048
     Dates: start: 20050304, end: 20050304
  22. HYDROCORTISONE [Suspect]
     Indication: HYPOTENSION
     Dosage: ONE DOSAGE RECEIVED
     Route: 042
     Dates: start: 20050304, end: 20050304
  23. CIPRO [Suspect]
     Indication: INFECTION PROPHYLAXIS
     Route: 042
     Dates: start: 20050304, end: 20050316
  24. NEUPOGEN [Suspect]
     Indication: NEUTROPENIA
     Dosage: ONE DOSAGE RECEIVED
     Route: 042
     Dates: start: 20050309, end: 20050309
  25. NOVALGIN [Suspect]
     Indication: PAIN
     Dosage: ROUTE: INTRAVENOUS
     Route: 065
     Dates: start: 20050311, end: 20050311
  26. NOVALGIN [Suspect]
     Dosage: ROUTE: INTRAVENOUS
     Route: 065
     Dates: start: 20050316, end: 20050319
  27. NOVALGIN [Suspect]
     Dosage: ROUTE: ORAL.
     Route: 065
     Dates: start: 20050316, end: 20050316
  28. ERYTHROMYCINUM [Suspect]
     Indication: ANAEMIA
     Dosage: SINGLE DOSAGE RECEIVED. DRUG NAME: ERYTHROZYPENKONZ
     Route: 042
     Dates: start: 20050312, end: 20050312
  29. ALLOPURINOL [Suspect]
     Dosage: SINGLE DOSAGE RECEIVED
     Route: 048
     Dates: start: 20050314, end: 20050314
  30. TAVEGIL [Suspect]
     Indication: PRURITUS
     Dosage: ROUTE: INTRAVENOUS
     Route: 065
     Dates: start: 20050316, end: 20051117
  31. TAVEGIL [Suspect]
     Dosage: ROUTE: ORAL
     Route: 065
     Dates: start: 20050224, end: 20050302
  32. CYMEVEN [Concomitant]
     Indication: INFECTION
     Route: 048
     Dates: start: 20050218, end: 20050222
  33. ACYCLOVIR [Concomitant]
     Dosage: DOSAGE: 1 X TGL
     Route: 061
     Dates: start: 20050204, end: 20050223
  34. DECOSTRIOL [Concomitant]
     Route: 048
     Dates: start: 20050203, end: 20050223
  35. AMPHO-MORONAL [Concomitant]
     Indication: CANDIDIASIS
     Route: 050
     Dates: start: 20050203, end: 20050224
  36. ACETYLCYSTEINE [Concomitant]
     Dosage: DRUG: ACC BRAUSE
     Route: 048
     Dates: start: 20050217, end: 20050224
  37. SODIUM CHLORIDE [Concomitant]
     Route: 055
     Dates: start: 20050217, end: 20050224
  38. MAGNESIUM VERLA [Concomitant]
     Route: 048
     Dates: start: 20050203, end: 20050224
  39. LOCOL [Concomitant]
     Indication: HYPERCHOLESTEROLAEMIA
     Route: 048
     Dates: start: 20050203, end: 20050227
  40. PARACODIN BITARTRATE TAB [Concomitant]
     Indication: PAIN
     Dosage: DRUG: PARACODIN TROPFEN, DOSAGE: 20 TR ONCE DAILY
     Route: 048
     Dates: start: 20050222, end: 20050223
  41. PRIMAXIN [Concomitant]
     Indication: ENDOCARDITIS
     Route: 042
     Dates: start: 20050217, end: 20050224
  42. LACTULOSE [Concomitant]
     Dosage: DRUG: BIFITERAL SYRUP
     Route: 048
     Dates: start: 20050223, end: 20050223
  43. LACTULOSE [Concomitant]
     Route: 048
     Dates: start: 20050303, end: 20050303
  44. THESIT [Concomitant]
     Indication: PRURITUS
     Dosage: DRUG: THESIT 10% IN DAC-BASISCREME, 1 XTGL
     Route: 061
     Dates: start: 20050224, end: 20050224
  45. THESIT [Concomitant]
     Dosage: DRUG: THESIT 10% IN DAC-BASISCREME, 1 XTGL
     Route: 061
     Dates: start: 20050302, end: 20050303
  46. 1 X KLYSMA SORBIT [Concomitant]
     Dosage: UG: KLYSMA
     Dates: start: 20050302, end: 20050302
  47. DERMATOP [Concomitant]
     Dosage: DRUG: DERMATOP SALBE, DOSAGE: 1XTGL, GES KORPER
     Route: 061
     Dates: start: 20050302, end: 20050303
  48. LAXOBERAL [Concomitant]
     Route: 048
  49. 1 CONCOMITANT DRUG [Concomitant]
     Dosage: DRUG: BRONCHOFERTIG
     Route: 055

REACTIONS (1)
  - TOXIC EPIDERMAL NECROLYSIS [None]
